FAERS Safety Report 6889026-6 (Version None)
Quarter: 2010Q3

REPORT INFORMATION
  Report Type: 
  Country: None (occurrence: None)
  Receive Date: 20100730
  Receipt Date: 20080124
  Transmission Date: 20110219
  Serious: No
  Sender: FDA-Public Use
  Company Number: US-PFIZER INC-2007104081

PATIENT
  Sex: Male
  Weight: 70.454 kg

DRUGS (2)
  1. LIPITOR [Suspect]
     Indication: BLOOD CHOLESTEROL
     Dates: start: 20010101, end: 20070101
  2. ACETYLSALICYLIC ACID SRT [Concomitant]

REACTIONS (4)
  - DRY SKIN [None]
  - MUSCULAR WEAKNESS [None]
  - MYALGIA [None]
  - SKIN FISSURES [None]
